FAERS Safety Report 6156194-3 (Version None)
Quarter: 2009Q2

REPORT INFORMATION
  Report Type: 
  Country: None (occurrence: None)
  Receive Date: 20090409
  Receipt Date: 20090409
  Transmission Date: 20091009
  Serious: No
  Sender: FDA-Public Use
  Company Number: None

PATIENT
  Age: 26 Year
  Sex: Female
  Weight: 91.173 kg

DRUGS (2)
  1. MORPHINE SUL TAB [Suspect]
     Indication: CHOLECYSTECTOMY
     Dosage: 5MG EVERY 5 MINUTES IV BOLUS
     Route: 040
     Dates: start: 20090409, end: 20090409
  2. MORPHINE SUL TAB [Suspect]
     Indication: PROCEDURAL PAIN
     Dosage: 5MG EVERY 5 MINUTES IV BOLUS
     Route: 040
     Dates: start: 20090409, end: 20090409

REACTIONS (2)
  - DRUG EFFECT DECREASED [None]
  - INADEQUATE ANALGESIA [None]
